FAERS Safety Report 18572244 (Version 7)
Quarter: 2021Q2

REPORT INFORMATION
  Report Type: Report from Study
  Country: CO (occurrence: CO)
  Receive Date: 20201202
  Receipt Date: 20210517
  Transmission Date: 20210717
  Serious: Yes (Hospitalization, Other)
  Sender: FDA-Public Use
  Company Number: CO-TAKEDA-2020TUS041278

PATIENT
  Age: 37 Year
  Sex: Female
  Weight: 66 kg

DRUGS (1)
  1. VEDOLIZUMAB [Suspect]
     Active Substance: VEDOLIZUMAB
     Indication: COLITIS ULCERATIVE
     Dosage: 300 MILLIGRAM
     Route: 042
     Dates: start: 20190828

REACTIONS (12)
  - Haemoglobin abnormal [Not Recovered/Not Resolved]
  - Inflammation [Not Recovered/Not Resolved]
  - Haematochezia [Not Recovered/Not Resolved]
  - Headache [Recovered/Resolved]
  - Dyspnoea [Recovered/Resolved]
  - Pyrexia [Recovered/Resolved]
  - Hospitalisation [Unknown]
  - Weight increased [Unknown]
  - Psychiatric symptom [Recovered/Resolved]
  - Feeling abnormal [Not Recovered/Not Resolved]
  - Cough [Not Recovered/Not Resolved]
  - Pain [Recovered/Resolved]

NARRATIVE: CASE EVENT DATE: 20200924
